FAERS Safety Report 5061260-X (Version None)
Quarter: 2006Q3

REPORT INFORMATION
  Report Type: 
  Country: None (occurrence: None)
  Receive Date: 20060720
  Receipt Date: 20060707
  Transmission Date: 20061208
  Serious: Yes (Death, Life-Threatening, Other)
  Sender: FDA-Public Use
  Company Number: 2006081540

PATIENT
  Age: 80 Year
  Weight: 45 kg

DRUGS (4)
  1. ZYVOX [Suspect]
     Indication: PNEUMONIA
     Dosage: 1200 MG (600 MG, 2 IN 1 D) INTRAVENOUS
     Route: 042
     Dates: start: 20060619, end: 20060623
  2. FINIBAX (DORIPENEM) (ALL OTHER THERAPEUTIC PRODUCTS) [Suspect]
     Indication: PNEUMONIA
     Dosage: 0.75 GRAM (0.25 GRAM, 3 IN 1 D) INTRAVENOUS
     Route: 042
     Dates: start: 20060613, end: 20060620
  3. VANCOMYCIN HYDROCHLORIDE [Suspect]
     Indication: PNEUMONIA
     Dosage: 1 GRAM (0.5 GRAM, 2 IN 1 D) INTRAVENOUS
     Route: 042
     Dates: start: 20060616, end: 20060619
  4. SOLU-MEDROL [Concomitant]

REACTIONS (10)
  - BLOOD LACTATE DEHYDROGENASE INCREASED [None]
  - CARDIAC FAILURE [None]
  - CULTURE URINE POSITIVE [None]
  - DEHYDRATION [None]
  - ENTEROCOCCAL INFECTION [None]
  - INFLAMMATION [None]
  - RENAL IMPAIRMENT [None]
  - RESPIRATORY FAILURE [None]
  - THROMBOCYTOPENIA [None]
  - URINARY CASTS [None]
